FAERS Safety Report 6266561-5 (Version None)
Quarter: 2009Q3

REPORT INFORMATION
  Report Type: 
  Country: None (occurrence: None)
  Receive Date: 20090710
  Receipt Date: 20090630
  Transmission Date: 20100115
  Serious: Yes (Other)
  Sender: FDA-Public Use
  Company Number: CHPA2009US14541

PATIENT
  Age: 50 Year
  Sex: Female

DRUGS (2)
  1. EXCEDRIN TENSION HEADACHE (NCH) (ACETAMINOPHEN (PARACETAMOL), CAFFEINE [Suspect]
     Indication: HEADACHE
     Dosage: 6 DF, QD, ORAL
     Route: 048
  2. EXCEDRIN TENSION HEADACHE (NCH) (ACETAMINOPHEN (PARACETAMOL), CAFFEINE [Suspect]
     Dosage: 6 DF, QD, ORAL; 2DF, BID,ORAL
     Route: 048

REACTIONS (4)
  - DRUG DEPENDENCE [None]
  - INAPPROPRIATE SCHEDULE OF DRUG ADMINISTRATION [None]
  - INTENTIONAL DRUG MISUSE [None]
  - THERAPEUTIC RESPONSE DECREASED [None]
